FAERS Safety Report 12196134 (Version 1)
Quarter: 2016Q1

REPORT INFORMATION
  Report Type: Other
  Country: SA (occurrence: SA)
  Receive Date: 20160321
  Receipt Date: 20160321
  Transmission Date: 20160526
  Serious: Yes (Other)
  Sender: FDA-Public Use
  Company Number: SA-DEP_13841_2016

PATIENT
  Age: 60 Year
  Sex: Male

DRUGS (4)
  1. CALCIUM ANTAGONIST [Concomitant]
     Active Substance: UNSPECIFIED INGREDIENT
     Dosage: DF
  2. ESOMOPROZOLE [Concomitant]
     Dosage: DF
  3. DICLOFENAC [Suspect]
     Active Substance: DICLOFENAC
     Indication: ARTHRALGIA
     Dosage: 50/100 MG, OVER 6 MONTHS
  4. SIMVASTATIN. [Concomitant]
     Active Substance: SIMVASTATIN
     Dosage: DF

REACTIONS (5)
  - Chills [Unknown]
  - Retinal exudates [Unknown]
  - Tubulointerstitial nephritis and uveitis syndrome [Recovered/Resolved]
  - Cystoid macular oedema [Unknown]
  - Pupillary disorder [Unknown]
